FAERS Safety Report 9516674 (Version 1)
Quarter: 2013Q3

REPORT INFORMATION
  Report Type: Spontaneous
  Country: US (occurrence: US)
  Receive Date: 20130911
  Receipt Date: 20130911
  Transmission Date: 20140515
  Serious: Yes (Other)
  Sender: FDA-Public Use
  Company Number: US-JNJFOC-20130902380

PATIENT
  Sex: Male

DRUGS (1)
  1. 2-CHLORODEOXYADENOSINE [Suspect]
     Indication: LANGERHANS^ CELL HISTIOCYTOSIS
     Dosage: FOR 3 CONSECUTIVE DAYS BY CONTINUOUS INFUSION REPEATED EVERY 4 WEEKS FOR 7 COURSES
     Route: 042

REACTIONS (3)
  - Bone marrow failure [Unknown]
  - Pneumococcal sepsis [Unknown]
  - Off label use [Unknown]
